FAERS Safety Report 20917906 (Version 1)
Quarter: 2022Q2

REPORT INFORMATION
  Report Type: Spontaneous
  Country: TW (occurrence: TW)
  Receive Date: 20220606
  Receipt Date: 20220606
  Transmission Date: 20220720
  Serious: Yes (Other)
  Sender: FDA-Public Use
  Company Number: TW-PADAGIS-2022PAD00117

PATIENT

DRUGS (1)
  1. TRETINOIN [Suspect]
     Active Substance: TRETINOIN
     Indication: Acute promyelocytic leukaemia
     Dosage: UNK
     Route: 065

REACTIONS (4)
  - Acute febrile neutrophilic dermatosis [Recovering/Resolving]
  - Pyrexia [Recovering/Resolving]
  - Rash erythematous [Recovering/Resolving]
  - Product use in unapproved indication [Unknown]
